FAERS Safety Report 9406445 (Version 2)
Quarter: 2013Q3

REPORT INFORMATION
  Report Type: Report from Study
  Country: BR (occurrence: BR)
  Receive Date: 20130718
  Receipt Date: 20130918
  Transmission Date: 20140515
  Serious: Yes (Life-Threatening)
  Sender: FDA-Public Use
  Company Number: BR-ROCHE-1249526

PATIENT
  Sex: Male
  Weight: 72 kg

DRUGS (2)
  1. INTERFERON ALFA-2A [Suspect]
     Indication: HEPATITIS C
     Route: 065
     Dates: start: 2011, end: 2012
  2. RIBAVIRIN [Suspect]
     Indication: HEPATITIS C
     Route: 065
     Dates: start: 2011, end: 2012

REACTIONS (2)
  - Hepatitis C [Not Recovered/Not Resolved]
  - Viral load increased [Not Recovered/Not Resolved]
